FAERS Safety Report 19097368 (Version 2)
Quarter: 2021Q2

REPORT INFORMATION
  Report Type: Spontaneous
  Country: DE (occurrence: DE)
  Receive Date: 20210406
  Receipt Date: 20210413
  Transmission Date: 20210717
  Serious: Yes (Other)
  Sender: FDA-Public Use
  Company Number: DE-PFIZER INC-2021341322

PATIENT
  Age: 56 Year
  Sex: Male

DRUGS (3)
  1. BEVACIZUMAB. [Suspect]
     Active Substance: BEVACIZUMAB
     Indication: HEPATOCELLULAR CARCINOMA
     Dosage: ADMINISTERED WITH GEMCITABINE ON DAY 1 OF 14?DAYS?CYCLE
     Route: 065
     Dates: start: 200705, end: 200709
  2. OXALIPLATIN. [Suspect]
     Active Substance: OXALIPLATIN
     Indication: HEPATOCELLULAR CARCINOMA
     Dosage: ADMINISTERED  ON DAY 2 OF 14?DAYS?CYCLE
     Route: 065
     Dates: start: 200705, end: 200709
  3. GEMCITABINE HYDROCHLORIDE. [Suspect]
     Active Substance: GEMCITABINE HYDROCHLORIDE
     Indication: HEPATOCELLULAR CARCINOMA
     Dosage: ADMINISTERED WITH BEVACIZUMAB ON DAY 1 OF 14?DAYS?CYCLE
     Route: 065
     Dates: start: 200705, end: 200709

REACTIONS (4)
  - Pancytopenia [Recovered/Resolved]
  - Off label use [Recovered/Resolved]
  - Weight decreased [Recovered/Resolved]
  - Renal failure [Recovered/Resolved]
